FAERS Safety Report 7945207-1 (Version None)
Quarter: 2011Q4

REPORT INFORMATION
  Report Type: 
  Country: None (occurrence: None)
  Receive Date: 20111129
  Receipt Date: 20110304
  Transmission Date: 20120403
  Serious: No
  Sender: FDA-Public Use
  Company Number: US-GLAXOSMITHKLINE-A0917416A

PATIENT
  Age: 61 Year
  Sex: Male

DRUGS (1)
  1. FLOVENT [Suspect]
     Indication: PRODUCT USED FOR UNKNOWN INDICATION
     Dosage: 250MCG UNKNOWN
     Route: 055
     Dates: start: 20110112

REACTIONS (6)
  - FATIGUE [None]
  - DYSPNOEA [None]
  - DRY MOUTH [None]
  - RHINORRHOEA [None]
  - DRY THROAT [None]
  - COUGH [None]
